FAERS Safety Report 6969907-5 (Version None)
Quarter: 2010Q3

REPORT INFORMATION
  Report Type: 
  Country: None (occurrence: None)
  Receive Date: 20100908
  Receipt Date: 20100823
  Transmission Date: 20110219
  Serious: Yes (Other)
  Sender: FDA-Public Use
  Company Number: US-BAYER-201026121NA

PATIENT
  Age: 70 Year
  Sex: Male

DRUGS (7)
  1. LEUKINE [Suspect]
     Indication: PROSTATE CANCER METASTATIC
     Dosage: TOTAL DAILY DOSE: 250 ?G/M2
     Dates: start: 20100222
  2. LEUKINE [Suspect]
     Dosage: TOTAL DAILY DOSE: 250 ?G/M2
     Dates: start: 20100323, end: 20100401
  3. LEUKINE [Suspect]
     Dosage: TOTAL DAILY DOSE: 250 ?G/M2
     Dates: start: 20100501, end: 20100610
  4. IPILIMUMAB [Suspect]
     Indication: PROSTATE CANCER METASTATIC
     Dosage: CYCLE 1 / DAY 1
     Dates: start: 20100222, end: 20100222
  5. IPILIMUMAB [Suspect]
     Dosage: CYCLE 3
     Dates: start: 20100401, end: 20100401
  6. IPILIMUMAB [Suspect]
     Dosage: CYCLE 2/DAY 1
     Dates: start: 20100323, end: 20100323
  7. RITALIN [Concomitant]

REACTIONS (1)
  - ATRIAL FIBRILLATION [None]
